FAERS Safety Report 8847635 (Version 2)
Quarter: 2012Q4

REPORT INFORMATION
  Report Type: 
  Country: US (occurrence: US)
  Receive Date: 20121018
  Receipt Date: 20121114
  Transmission Date: 20130627
  Serious: No
  Sender: FDA-Public Use
  Company Number: US-ASTRAZENECA-2012SE76987

PATIENT
  Sex: Female
  Weight: 56.7 kg

DRUGS (3)
  1. SYMBICORT [Suspect]
     Dosage: 160/4.5MCG, TWO PUFFS TWICE A DAY
     Route: 055
  2. XOPINEX [Concomitant]
  3. ASA [Concomitant]

REACTIONS (2)
  - Dyspnoea [Unknown]
  - Drug dose omission [Unknown]
